FAERS Safety Report 5775972-3 (Version None)
Quarter: 2008Q2

REPORT INFORMATION
  Report Type: 
  Country: None (occurrence: None)
  Receive Date: 20080617
  Receipt Date: 20080606
  Transmission Date: 20081010
  Serious: Yes (Other)
  Sender: FDA-Public Use
  Company Number: US-BAXTER-2008BH005548

PATIENT
  Age: 52 Year
  Sex: Female

DRUGS (1)
  1. ARTISS [Suspect]
     Indication: GASTRIC BYPASS
     Route: 061
     Dates: start: 20070327, end: 20070327

REACTIONS (1)
  - HEPATITIS C VIRUS [None]
